FAERS Safety Report 5685891-9 (Version None)
Quarter: 2008Q1

REPORT INFORMATION
  Report Type: 
  Country: None (occurrence: None)
  Receive Date: 20080328
  Receipt Date: 20070824
  Transmission Date: 20080703
  Serious: No
  Sender: FDA-Public Use
  Company Number: US-BAYER-US-2007-032020

PATIENT
  Age: 29 Year
  Sex: Female
  Weight: 63 kg

DRUGS (3)
  1. MIRENA [Suspect]
     Indication: CONTRACEPTION
     Route: 015
     Dates: start: 20060801
  2. EFFEXOR [Concomitant]
  3. BUSPAR [Concomitant]
     Dosage: UNIT DOSE: 10 MG

REACTIONS (3)
  - MENSTRUATION DELAYED [None]
  - PROCEDURAL PAIN [None]
  - UNEVALUABLE EVENT [None]
